FAERS Safety Report 20454397 (Version 1)
Quarter: 2022Q1

REPORT INFORMATION
  Report Type: Spontaneous
  Country: US (occurrence: US)
  Receive Date: 20220210
  Receipt Date: 20220210
  Transmission Date: 20220423
  Serious: Yes (Other)
  Sender: FDA-Public Use
  Company Number: US-BAYER-2022A006409

PATIENT
  Age: 77 Year
  Sex: Male

DRUGS (1)
  1. DOCUSATE SODIUM [Suspect]
     Active Substance: DOCUSATE SODIUM
     Route: 048

REACTIONS (2)
  - Foreign body in throat [Recovered/Resolved]
  - Throat irritation [Recovered/Resolved]
